FAERS Safety Report 24429037 (Version 1)
Quarter: 2024Q4

REPORT INFORMATION
  Report Type: Spontaneous
  Country: US (occurrence: US)
  Receive Date: 20241011
  Receipt Date: 20241011
  Transmission Date: 20250115
  Serious: Yes (Hospitalization, Other)
  Sender: VISTAPHARM
  Company Number: US-VISTAPHARM-2024-US-054573

PATIENT
  Age: 38 Year
  Sex: Male

DRUGS (5)
  1. VALPROIC ACID [Suspect]
     Active Substance: VALPROIC ACID
     Indication: Seizure
  2. LEVETIRACETAM [Concomitant]
     Active Substance: LEVETIRACETAM
  3. LEVOCARNITINE [Concomitant]
     Active Substance: LEVOCARNITINE
  4. LACOSAMIDE [Concomitant]
     Active Substance: LACOSAMIDE
  5. CLOBAZAM [Suspect]
     Active Substance: CLOBAZAM
     Indication: Seizure

REACTIONS (1)
  - Metabolic encephalopathy [Recovered/Resolved]
